FAERS Safety Report 5282068-6 (Version None)
Quarter: 2007Q1

REPORT INFORMATION
  Report Type: 
  Country: None (occurrence: None)
  Receive Date: 20070330
  Receipt Date: 20070320
  Transmission Date: 20070707
  Serious: Yes (Life-Threatening, Hospitalization, Other)
  Sender: FDA-Public Use
  Company Number: CA-ABBOTT-06P-028-0346292-00

PATIENT
  Sex: Male

DRUGS (5)
  1. LIPIDIL [Suspect]
     Indication: DRUG USE FOR UNKNOWN INDICATION
     Route: 048
  2. OLANZAPINE [Suspect]
     Indication: PSYCHOTIC DISORDER
     Route: 065
     Dates: end: 20051218
  3. OLANZAPINE [Suspect]
     Dates: start: 20051219
  4. VALPROATE SODIUM [Concomitant]
     Indication: DRUG USE FOR UNKNOWN INDICATION
  5. PROCYCLIDINE HYDROCHLORIDE 5MG TAB [Concomitant]
     Indication: DRUG USE FOR UNKNOWN INDICATION

REACTIONS (3)
  - DIABETIC KETOACIDOSIS [None]
  - HYPERTRIGLYCERIDAEMIA [None]
  - PANCREATITIS [None]
